FAERS Safety Report 11301958 (Version 1)
Quarter: 2015Q3

REPORT INFORMATION
  Report Type: Spontaneous
  Country: US (occurrence: US)
  Receive Date: 20150722
  Receipt Date: 20150722
  Transmission Date: 20151125
  Serious: No
  Sender: FDA-Public Use
  Company Number: US-ELI_LILLY_AND_COMPANY-US200908002878

PATIENT
  Sex: Female

DRUGS (2)
  1. EVISTA [Suspect]
     Active Substance: RALOXIFENE HYDROCHLORIDE
     Indication: OSTEOPOROSIS
     Dosage: UNK, UNKNOWN
     Route: 065
     Dates: start: 200907, end: 200908
  2. ESTRADIOL. [Interacting]
     Active Substance: ESTRADIOL
     Dosage: UNK, UNKNOWN
     Route: 065
     Dates: start: 2005

REACTIONS (6)
  - Dysuria [Unknown]
  - Drug interaction [Unknown]
  - Vulvovaginal pruritus [Unknown]
  - Hot flush [Unknown]
  - Urinary incontinence [Unknown]
  - Menopausal symptoms [Unknown]

NARRATIVE: CASE EVENT DATE: 2009
